FAERS Safety Report 23634720 (Version 1)
Quarter: 2024Q1

REPORT INFORMATION
  Report Type: Report from Study
  Country: CA (occurrence: CA)
  Receive Date: 20240315
  Receipt Date: 20240315
  Transmission Date: 20240410
  Serious: Yes (Other)
  Sender: FDA-Public Use
  Company Number: CA-TAKEDA-2024TUS015454

PATIENT
  Age: 49 Year
  Sex: Female

DRUGS (4)
  1. HUMAN IMMUNOGLOBULIN G\HYALURONIDASE RECOMBINANT HUMAN [Suspect]
     Active Substance: HUMAN IMMUNOGLOBULIN G\HYALURONIDASE (HUMAN RECOMBINANT)
     Indication: Dermatomyositis
     Dosage: 105 GRAM, Q4WEEKS
     Route: 050
     Dates: start: 20240214
  2. HUMAN IMMUNOGLOBULIN G\HYALURONIDASE RECOMBINANT HUMAN [Suspect]
     Active Substance: HUMAN IMMUNOGLOBULIN G\HYALURONIDASE (HUMAN RECOMBINANT)
     Dosage: 105 GRAM, Q4WEEKS
     Route: 050
  3. HUMAN IMMUNOGLOBULIN G\HYALURONIDASE RECOMBINANT HUMAN [Suspect]
     Active Substance: HUMAN IMMUNOGLOBULIN G\HYALURONIDASE (HUMAN RECOMBINANT)
     Dosage: 105 GRAM, Q4WEEKS
     Route: 050
  4. HUMAN IMMUNOGLOBULIN G\HYALURONIDASE RECOMBINANT HUMAN [Suspect]
     Active Substance: HUMAN IMMUNOGLOBULIN G\HYALURONIDASE (HUMAN RECOMBINANT)
     Dosage: UNK UNK, Q4WEEKS
     Route: 058

REACTIONS (24)
  - Stomatitis [Recovering/Resolving]
  - Weight decreased [Recovering/Resolving]
  - Epistaxis [Recovering/Resolving]
  - Rash [Recovering/Resolving]
  - Migraine [Recovering/Resolving]
  - Lethargy [Recovering/Resolving]
  - Diarrhoea [Recovering/Resolving]
  - Hypoaesthesia [Recovering/Resolving]
  - Paraesthesia [Recovering/Resolving]
  - Angular cheilitis [Recovered/Resolved]
  - Dry skin [Recovered/Resolved]
  - Infusion site rash [Recovered/Resolved]
  - Skin exfoliation [Recovered/Resolved]
  - Infusion site pain [Recovered/Resolved]
  - Headache [Recovered/Resolved]
  - Feeling cold [Unknown]
  - Obstruction [Recovering/Resolving]
  - Dysphagia [Recovering/Resolving]
  - Blood pressure abnormal [Unknown]
  - Infusion site swelling [Unknown]
  - Infusion site erythema [Unknown]
  - Urticaria [Recovering/Resolving]
  - Hot flush [Recovering/Resolving]
  - Off label use [Unknown]

NARRATIVE: CASE EVENT DATE: 20240214
